FAERS Safety Report 12920325 (Version 1)
Quarter: 2016Q4

REPORT INFORMATION
  Report Type: Spontaneous
  Country: US (occurrence: US)
  Receive Date: 20161108
  Receipt Date: 20161108
  Transmission Date: 20170207
  Serious: No
  Sender: FDA-Public Use
  Company Number: US-JNJFOC-20160928905

PATIENT
  Sex: Female

DRUGS (1)
  1. ORTHO TRI CYCLEN LO [Suspect]
     Active Substance: ETHINYL ESTRADIOL\NORGESTIMATE
     Indication: MENSTRUAL CYCLE MANAGEMENT
     Route: 048
     Dates: start: 2006

REACTIONS (7)
  - Hunger [Unknown]
  - Product use issue [Unknown]
  - Nausea [Unknown]
  - Impatience [Unknown]
  - Metrorrhagia [Unknown]
  - Dizziness [Unknown]
  - Mood altered [Unknown]
